FAERS Safety Report 10380544 (Version 1)
Quarter: 2014Q3

REPORT INFORMATION
  Report Type: Spontaneous
  Country: US (occurrence: None)
  Receive Date: 20140812
  Receipt Date: 20140812
  Transmission Date: 20150326
  Serious: Yes (Other)
  Sender: FDA-Public Use
  Company Number: None

PATIENT
  Age: 60 Year
  Sex: Female
  Weight: 71.67 kg

DRUGS (1)
  1. LEVOTHYROXINE [Suspect]
     Active Substance: LEVOTHYROXINE
     Indication: HYPOTHYROIDISM
     Dosage: 1 25 MCG TABLET ONCE A DAY ONCE DAILY TAKEN BY MOUTH
     Route: 048
     Dates: start: 20140803, end: 20140810

REACTIONS (4)
  - Heart rate increased [None]
  - Palpitations [None]
  - Headache [None]
  - Middle insomnia [None]

NARRATIVE: CASE EVENT DATE: 20140811
